FAERS Safety Report 11293478 (Version 1)
Quarter: 2015Q3

REPORT INFORMATION
  Report Type: Spontaneous
  Country: FR (occurrence: FR)
  Receive Date: 20150722
  Receipt Date: 20150722
  Transmission Date: 20151125
  Serious: Yes (Hospitalization)
  Sender: FDA-Public Use
  Company Number: FR-BAYER-2015-376979

PATIENT
  Age: 40 Year
  Sex: Female

DRUGS (2)
  1. AUGMENTIN [Concomitant]
     Active Substance: AMOXICILLIN\CLAVULANATE POTASSIUM
     Dosage: UNK
     Route: 048
     Dates: start: 20120827, end: 20120830
  2. CIFLOX [Suspect]
     Active Substance: CIPROFLOXACIN
     Dosage: UNK
     Route: 048
     Dates: start: 20120827, end: 20120830

REACTIONS (7)
  - Hypersensitivity [Recovered/Resolved]
  - Cough [Recovered/Resolved]
  - Hypotension [Recovered/Resolved]
  - Erythema [Recovered/Resolved]
  - Face oedema [Recovered/Resolved]
  - Pyrexia [Recovered/Resolved]
  - Anaphylactic shock [Recovered/Resolved]

NARRATIVE: CASE EVENT DATE: 20120829
